FAERS Safety Report 5219777-0 (Version None)
Quarter: 2006Q4

REPORT INFORMATION
  Report Type: 
  Country: None (occurrence: None)
  Receive Date: 20061201
  Receipt Date: 20060703
  Transmission Date: 20070319
  Serious: No
  Sender: FDA-Public Use
  Company Number: 2006PV016871

PATIENT
  Age: 53 Year
  Sex: Female
  Weight: 131.5431 kg

DRUGS (9)
  1. BYETTA [Suspect]
     Indication: DIABETES MELLITUS
     Dosage: SEE IMAGE
     Route: 058
     Dates: start: 20060401, end: 20060501
  2. BYETTA [Suspect]
     Indication: DIABETES MELLITUS
     Dosage: SEE IMAGE
     Route: 058
     Dates: start: 20060501
  3. GLUCOPHAGE [Concomitant]
  4. ACTOS ^LILLY^ [Concomitant]
  5. MULTI-VITAMIN [Concomitant]
  6. DICYCLOMINE HYDROCHLORIDE [Concomitant]
  7. ALTACE [Concomitant]
  8. CELEBREX [Concomitant]
  9. LEXAPRO [Concomitant]

REACTIONS (2)
  - BLOOD GLUCOSE INCREASED [None]
  - URINARY TRACT INFECTION [None]
